FAERS Safety Report 5374087-6 (Version None)
Quarter: 2007Q2

REPORT INFORMATION
  Report Type: 
  Country: None (occurrence: None)
  Receive Date: 20070627
  Receipt Date: 20070611
  Transmission Date: 20071010
  Serious: Yes (Life-Threatening)
  Sender: FDA-Public Use
  Company Number: 2007BI013089

PATIENT
  Age: 91 Year
  Sex: Female
  Weight: 67 kg

DRUGS (8)
  1. ZEVALIN [Suspect]
     Indication: NON-HODGKIN'S LYMPHOMA
     Dates: start: 20050501, end: 20050601
  2. ZEVALIN [Suspect]
     Indication: NON-HODGKIN'S LYMPHOMA
     Dosage: 5 MCI; 1X; IV
     Route: 042
     Dates: start: 20050817, end: 20050817
  3. ZEVALIN [Suspect]
     Indication: B-CELL LYMPHOMA
     Dosage: 25.9 MCI; 1X; IV
     Route: 042
     Dates: start: 20050824, end: 20050824
  4. RITUXIMAB [Concomitant]
  5. BENEFIBER [Concomitant]
  6. VITAMIN CAP [Concomitant]
  7. OS-CAL [Concomitant]
  8. PROZAC [Concomitant]

REACTIONS (4)
  - ADENOCARCINOMA [None]
  - HYPERMETABOLISM [None]
  - METASTASES TO GALLBLADDER [None]
  - METASTASES TO LIVER [None]
